FAERS Safety Report 7368773-6 (Version None)
Quarter: 2011Q1

REPORT INFORMATION
  Report Type: 
  Country: None (occurrence: None)
  Receive Date: 20110321
  Receipt Date: 20110321
  Transmission Date: 20110831
  Serious: Yes (Hospitalization, Other)
  Sender: FDA-Public Use
  Company Number: None

PATIENT
  Age: 55 Year
  Sex: Male
  Weight: 113.3993 kg

DRUGS (1)
  1. BENICAR [Suspect]
     Indication: HYPERTENSION
     Dosage: 1 PILL DAILY PO
     Route: 048
     Dates: start: 20101101, end: 20110315

REACTIONS (3)
  - AMNESIA [None]
  - IMPAIRED DRIVING ABILITY [None]
  - BLOOD SODIUM DECREASED [None]
